FAERS Safety Report 9565490 (Version 2)
Quarter: 2013Q3

REPORT INFORMATION
  Report Type: Spontaneous
  Country: FR (occurrence: FR)
  Receive Date: 20130930
  Receipt Date: 20130930
  Transmission Date: 20140515
  Serious: Yes (Hospitalization)
  Sender: FDA-Public Use
  Company Number: FR-TEVA-429590ISR

PATIENT
  Age: 58 Year
  Sex: Female

DRUGS (9)
  1. COPAXONE [Suspect]
     Indication: MULTIPLE SCLEROSIS
     Dosage: MANUAL INJECTION FOR ABOUT 5 YEARS
     Dates: end: 20130816
  2. COPAXONE [Suspect]
     Dates: start: 20130829, end: 20130829
  3. DOLIPRANE [Concomitant]
  4. ZOCOR [Concomitant]
     Indication: HYPERCHOLESTEROLAEMIA
  5. MOVICOL [Concomitant]
  6. VESICARE [Concomitant]
     Indication: URINARY TRACT DISORDER
  7. OGAST [Concomitant]
  8. NIFLUGEL [Concomitant]
     Indication: PAIN
  9. MONURIL [Concomitant]
     Indication: URINARY TRACT DISORDER
     Dosage: INTERMITTENT

REACTIONS (6)
  - Chest pain [Unknown]
  - Malaise [Unknown]
  - Dyspnoea [Unknown]
  - Erythema [Unknown]
  - Blood potassium decreased [Recovered/Resolved]
  - Hyperhidrosis [Unknown]
